FAERS Safety Report 5476897-3 (Version None)
Quarter: 2007Q3

REPORT INFORMATION
  Report Type: 
  Country: None (occurrence: None)
  Receive Date: 20070904
  Receipt Date: 20070716
  Transmission Date: 20080115
  Serious: Yes (Other)
  Sender: FDA-Public Use
  Company Number: PHEH2007US09343

PATIENT
  Age: 77 Year
  Sex: Male
  Weight: 77.1 kg

DRUGS (1)
  1. ENABLEX [Suspect]
     Indication: NOCTURIA
     Dosage: 15 MG, QD, ORAL
     Route: 048
     Dates: start: 20070529, end: 20070529

REACTIONS (3)
  - BLADDER CATHETERISATION [None]
  - PAIN [None]
  - URINARY RETENTION [None]
